FAERS Safety Report 7829334-5 (Version None)
Quarter: 2011Q4

REPORT INFORMATION
  Report Type: 
  Country: None (occurrence: None)
  Receive Date: 20111020
  Receipt Date: 20111014
  Transmission Date: 20120403
  Serious: Yes (Other)
  Sender: FDA-Public Use
  Company Number: ES-CEPHALON-2011005428

PATIENT
  Age: 74 Year
  Sex: Male

DRUGS (2)
  1. RITUXIMAB [Concomitant]
  2. BENDAMUSTINE HCL [Suspect]
     Indication: CHRONIC LYMPHOCYTIC LEUKAEMIA
     Route: 042

REACTIONS (1)
  - ANAEMIA HAEMOLYTIC AUTOIMMUNE [None]
